FAERS Safety Report 18252890 (Version 1)
Quarter: 2020Q3

REPORT INFORMATION
  Report Type: Spontaneous
  Country: IT (occurrence: IT)
  Receive Date: 20200910
  Receipt Date: 20200910
  Transmission Date: 20201103
  Serious: Yes (Hospitalization, Other)
  Sender: FDA-Public Use
  Company Number: IT-BRISTOL-MYERS SQUIBB COMPANY-BMS-2020-071816

PATIENT
  Age: 80 Year
  Sex: Male

DRUGS (2)
  1. CIPROXIN [CIPROFLOXACIN] [Concomitant]
     Indication: ANTIBIOTIC THERAPY
     Dosage: 1 DOSAGE FORM TOTAL
     Route: 048
     Dates: start: 20180406
  2. COUMADIN [Suspect]
     Active Substance: WARFARIN SODIUM
     Indication: ISCHAEMIC STROKE
     Dosage: 1 DOSAGE FORM, DAILY
     Route: 048
     Dates: start: 20180406, end: 20180413

REACTIONS (4)
  - Abdominal distension [Recovering/Resolving]
  - Abdominal pain [Recovering/Resolving]
  - Haematuria [Recovering/Resolving]
  - Hyperpyrexia [Recovering/Resolving]

NARRATIVE: CASE EVENT DATE: 20180413
